FAERS Safety Report 21143082 (Version 1)
Quarter: 2022Q3

REPORT INFORMATION
  Report Type: Spontaneous
  Country: CN (occurrence: CN)
  Receive Date: 20220728
  Receipt Date: 20220728
  Transmission Date: 20221026
  Serious: Yes (Hospitalization)
  Sender: FDA-Public Use
  Company Number: CN-PFIZER INC-PV202200028474

PATIENT
  Age: 32 Year
  Sex: Female

DRUGS (22)
  1. METHOTREXATE SODIUM [Suspect]
     Active Substance: METHOTREXATE SODIUM
     Indication: Prophylaxis
     Dosage: PERFORMED TWICE FROM 06NOV2018 TO 20DEC2018
  2. METHOTREXATE SODIUM [Suspect]
     Active Substance: METHOTREXATE SODIUM
     Dosage: 10 MG
     Route: 037
  3. METHOTREXATE SODIUM [Suspect]
     Active Substance: METHOTREXATE SODIUM
     Dosage: 15 MG
     Route: 037
  4. CYTARABINE [Concomitant]
     Active Substance: CYTARABINE
     Indication: Chemotherapy
     Dosage: PERFORMED ONCE FROM 06NOV2018 TO 20DEC2018
  5. CYTARABINE [Concomitant]
     Active Substance: CYTARABINE
     Dosage: 25 MG
     Route: 037
  6. DEXAMETHASONE [Concomitant]
     Active Substance: DEXAMETHASONE
     Indication: Chemotherapy
     Dosage: PERFORMED TWICE FROM 15SEP2018 TO 16OCT2018
  7. DEXAMETHASONE [Concomitant]
     Active Substance: DEXAMETHASONE
     Dosage: PERFORMED TWICE FROM 06NOV2018 TO 20DEC2018
  8. DEXAMETHASONE [Concomitant]
     Active Substance: DEXAMETHASONE
     Dosage: 10 MG
     Route: 037
  9. MABTHERA [Concomitant]
     Active Substance: RITUXIMAB
     Indication: Chemotherapy
     Dosage: PERFORMED TWICE FROM 15SEP2018 TO 16OCT2018
     Dates: start: 2018
  10. MABTHERA [Concomitant]
     Active Substance: RITUXIMAB
     Dosage: PERFORMED ONCE
     Dates: start: 2018
  11. MABTHERA [Concomitant]
     Active Substance: RITUXIMAB
     Dosage: PERFORMED TWICE FROM 06NOV2018 TO 20DEC2018
     Dates: start: 2018
  12. MABTHERA [Concomitant]
     Active Substance: RITUXIMAB
     Dosage: PERFORMED ONCE FROM 06NOV2018 TO 20DEC2018
     Dates: start: 2018
  13. ETOPOSIDE [Concomitant]
     Active Substance: ETOPOSIDE
     Indication: Chemotherapy
     Dosage: PERFORMED ONCE
  14. ETOPOSIDE [Concomitant]
     Active Substance: ETOPOSIDE
     Dosage: PERFORMED ONCE FROM 06NOV2018 TO 20DEC2018
  15. VINCRISTINE [Concomitant]
     Active Substance: VINCRISTINE
     Indication: Chemotherapy
     Dosage: PERFORMED TWICE FROM 15SEP2018 TO 16OCT2018
  16. VINCRISTINE [Concomitant]
     Active Substance: VINCRISTINE
     Dosage: PERFORMED ONCE
  17. PIRARUBICIN [Concomitant]
     Active Substance: PIRARUBICIN
     Indication: Chemotherapy
     Dosage: PERFORMED TWICE FROM 15SEP2018 TO 16OCT2018
  18. CYCLOPHOSPHAMIDE [Concomitant]
     Active Substance: CYCLOPHOSPHAMIDE
     Indication: Chemotherapy
     Dosage: PERFORMED TWICE FROM 15SEP2018 TO 16OCT2018
  19. CYCLOPHOSPHAMIDE [Concomitant]
     Active Substance: CYCLOPHOSPHAMIDE
     Dosage: PERFORMED TWICE FROM 06NOV2018 TO 20DEC2018
  20. VINORELBINE [Concomitant]
     Active Substance: VINORELBINE TARTRATE
     Indication: Chemotherapy
     Dosage: PERFORMED TWICE FROM 06NOV2018 TO 20DEC2018
  21. DOXORUBICIN HYDROCHLORIDE [Concomitant]
     Active Substance: DOXORUBICIN HYDROCHLORIDE
     Indication: Chemotherapy
     Dosage: PERFORMED TWICE FROM 06NOV2018 TO 20DEC2018
  22. IFOSFAMIDE [Concomitant]
     Active Substance: IFOSFAMIDE
     Indication: Chemotherapy
     Dosage: PERFORMED ONCE FROM 06NOV2018 TO 20DEC2018

REACTIONS (2)
  - Spinal cord disorder [Recovering/Resolving]
  - Off label use [Unknown]
